FAERS Safety Report 18600109 (Version 1)
Quarter: 2020Q4

REPORT INFORMATION
  Report Type: Other
  Country: TH (occurrence: TH)
  Receive Date: 20201210
  Receipt Date: 20201210
  Transmission Date: 20210114
  Serious: Yes (Hospitalization, Other)
  Sender: FDA-Public Use
  Company Number: TH-EMD SERONO-9204435

PATIENT
  Age: 52 Year
  Sex: Male

DRUGS (1)
  1. METFORMIN [Suspect]
     Active Substance: METFORMIN HYDROCHLORIDE
     Indication: TYPE 2 DIABETES MELLITUS

REACTIONS (4)
  - Vitamin B12 deficiency [Unknown]
  - Pancytopenia [Unknown]
  - Myocardial infarction [Unknown]
  - Folate deficiency [Unknown]
